FAERS Safety Report 22886565 (Version 5)
Quarter: 2024Q4

REPORT INFORMATION
  Report Type: Report from Study
  Country: JP (occurrence: JP)
  Receive Date: 20230831
  Receipt Date: 20241216
  Transmission Date: 20250115
  Serious: Yes (Life-Threatening, Hospitalization, Other)
  Sender: ROCHE
  Company Number: JP-CHUGAI-2023031157

PATIENT
  Age: 74 Year
  Sex: Male
  Weight: 48.75 kg

DRUGS (2)
  1. TECENTRIQ [Suspect]
     Active Substance: ATEZOLIZUMAB
     Indication: Non-small cell lung cancer
     Route: 041
     Dates: start: 20230803, end: 20230803
  2. ACETAMINOPHEN [Concomitant]
     Active Substance: ACETAMINOPHEN
     Dates: start: 20230817

REACTIONS (5)
  - Dermatomyositis [Recovered/Resolved]
  - Dehydration [Unknown]
  - Renal impairment [Recovering/Resolving]
  - Liver disorder [Recovering/Resolving]
  - Cytokine storm [Recovered/Resolved]

NARRATIVE: CASE EVENT DATE: 20230812
